FAERS Safety Report 14520186 (Version 2)
Quarter: 2018Q1

REPORT INFORMATION
  Report Type: Spontaneous
  Country: JP (occurrence: JP)
  Receive Date: 20180212
  Receipt Date: 20180221
  Transmission Date: 20180509
  Serious: Yes (Life-Threatening, Hospitalization)
  Sender: FDA-Public Use
  Company Number: JP-EISAI MEDICAL RESEARCH-EC-2018-036006

PATIENT
  Age: 72 Year
  Sex: Male

DRUGS (2)
  1. SALAGEN [Suspect]
     Active Substance: PILOCARPINE HYDROCHLORIDE
     Indication: DRY MOUTH
     Route: 048
     Dates: start: 20171127, end: 20171212
  2. ARCRANE [Concomitant]
     Indication: STOMATITIS
     Route: 048
     Dates: start: 20171106, end: 20171212

REACTIONS (1)
  - Interstitial lung disease [Recovering/Resolving]

NARRATIVE: CASE EVENT DATE: 20171208
